FAERS Safety Report 13525765 (Version 2)
Quarter: 2017Q2

REPORT INFORMATION
  Report Type: Spontaneous
  Country: IT (occurrence: IT)
  Receive Date: 20170509
  Receipt Date: 20170629
  Transmission Date: 20170830
  Serious: Yes (Other)
  Sender: FDA-Public Use
  Company Number: IT-ROCHE-1931611

PATIENT
  Age: 79 Year
  Sex: Female

DRUGS (2)
  1. RIBAVIRIN. [Suspect]
     Active Substance: RIBAVIRIN
     Indication: CHRONIC HEPATITIS C
     Route: 065
     Dates: start: 2015
  2. SOVALDI [Suspect]
     Active Substance: SOFOSBUVIR
     Indication: CHRONIC HEPATITIS C
     Dosage: 28 X 400 MG - FILM-COATED TABLET - BOTTLE (HDPE)
     Route: 048
     Dates: start: 2015

REACTIONS (2)
  - Viral mutation identified [Not Recovered/Not Resolved]
  - Drug ineffective [Unknown]
